FAERS Safety Report 9178803 (Version 1)
Quarter: 2013Q1

REPORT INFORMATION
  Report Type: Spontaneous
  Country: US (occurrence: US)
  Receive Date: 20130321
  Receipt Date: 20130321
  Transmission Date: 20140127
  Serious: No
  Sender: FDA-Public Use
  Company Number: US-BAYER-2013-031056

PATIENT
  Sex: Female

DRUGS (3)
  1. CLIMARA [Suspect]
     Indication: HOT FLUSH
     Dosage: 0.1 MG, QD
     Route: 062
  2. ESTRADIOL [Suspect]
  3. HERBS [Concomitant]

REACTIONS (5)
  - Product adhesion issue [None]
  - Hot flush [None]
  - Insomnia [None]
  - Application site urticaria [None]
  - Drug ineffective [None]
